FAERS Safety Report 5509874-4 (Version None)
Quarter: 2007Q4

REPORT INFORMATION
  Report Type: 
  Country: None (occurrence: None)
  Receive Date: 20071107
  Receipt Date: 20071107
  Transmission Date: 20080405
  Serious: Yes (Hospitalization)
  Sender: FDA-Public Use
  Company Number: None

PATIENT
  Sex: Female
  Weight: 50.95 kg

DRUGS (6)
  1. CISPLATIN [Suspect]
     Dosage: 77 MG
  2. DOXORUBICIN HYDROCHLORIDE [Suspect]
     Dosage: 69 MG
  3. G-CSF(FILGRASTIM, AMGEN) [Suspect]
     Dosage: 6 MG
  4. TAXOL [Suspect]
     Dosage: 245 MG
  5. FLAGYL [Concomitant]
  6. LEVAQUIN [Concomitant]

REACTIONS (8)
  - ABDOMINAL DISTENSION [None]
  - ABDOMINAL PAIN [None]
  - FLATULENCE [None]
  - HAEMOGLOBIN DECREASED [None]
  - ILEUS [None]
  - NAUSEA [None]
  - SMALL INTESTINAL OBSTRUCTION [None]
  - VOMITING [None]
